FAERS Safety Report 19019469 (Version 1)
Quarter: 2021Q1

REPORT INFORMATION
  Report Type: Report from Study
  Country: IL (occurrence: IL)
  Receive Date: 20210317
  Receipt Date: 20210317
  Transmission Date: 20210420
  Serious: Yes (Hospitalization)
  Sender: FDA-Public Use
  Company Number: IL-GLAXOSMITHKLINE-IL2020GSK031527

PATIENT
  Age: 67 Year
  Sex: Female
  Weight: 68 kg

DRUGS (11)
  1. CISPLATIN. [Concomitant]
     Active Substance: CISPLATIN
     Indication: OVARIAN CANCER
     Dosage: UNK
     Route: 042
  2. DOCETAXEL. [Concomitant]
     Active Substance: DOCETAXEL
     Indication: OVARIAN CANCER
     Dosage: UNK
     Route: 042
  3. PACLITAXEL. [Suspect]
     Active Substance: PACLITAXEL
     Indication: OVARIAN CANCER
     Dosage: 95 MG
     Route: 042
     Dates: start: 20190723, end: 20190723
  4. NIRAPARIB [Suspect]
     Active Substance: NIRAPARIB
     Indication: OVARIAN CANCER
     Dosage: 200 MG, CYC?EVERY 21 DAYS
     Dates: start: 20200127, end: 20200217
  5. DOSTARLIMAB [Suspect]
     Active Substance: DOSTARLIMAB
     Indication: OVARIAN CANCER
     Dosage: 500 MG
     Dates: start: 20190814, end: 20190814
  6. NIRAPARIB [Suspect]
     Active Substance: NIRAPARIB
     Dosage: 100 MG, CYC?EVERY 21 DAYS
     Dates: start: 20200311
  7. DOSTARLIMAB [Suspect]
     Active Substance: DOSTARLIMAB
     Dosage: 1000 MG
     Dates: start: 20200127, end: 20200127
  8. CARBOPLATIN. [Suspect]
     Active Substance: CARBOPLATIN
     Indication: OVARIAN CANCER
     Dosage: 6 AUC
     Route: 042
     Dates: start: 20190723, end: 20190723
  9. CARBOPLATIN. [Suspect]
     Active Substance: CARBOPLATIN
     Dosage: 570 MG
     Route: 042
     Dates: start: 20200108, end: 20200108
  10. BEVACIZUMAB. [Suspect]
     Active Substance: BEVACIZUMAB
     Indication: OVARIAN CANCER
     Dosage: UNK
     Route: 042
  11. PACLITAXEL. [Suspect]
     Active Substance: PACLITAXEL
     Dosage: 235 MG
     Route: 042
     Dates: end: 20200108

REACTIONS (1)
  - Pancytopenia [Recovered/Resolved]

NARRATIVE: CASE EVENT DATE: 20200217
